FAERS Safety Report 7403499-1 (Version None)
Quarter: 2011Q2

REPORT INFORMATION
  Report Type: 
  Country: None (occurrence: None)
  Receive Date: 20110408
  Receipt Date: 20110404
  Transmission Date: 20111010
  Serious: Yes (Other)
  Sender: FDA-Public Use
  Company Number: US-PFIZER INC-2011040153

PATIENT
  Sex: Female

DRUGS (2)
  1. CENTRUM SILVER ULTRA WOMEN'S [Suspect]
     Dosage: UNK
  2. LIPITOR [Suspect]
     Dosage: UNK

REACTIONS (4)
  - ORAL DISCOMFORT [None]
  - ABDOMINAL DISCOMFORT [None]
  - PERIODONTITIS [None]
  - GLOSSODYNIA [None]
